FAERS Safety Report 13819897 (Version 1)
Quarter: 2017Q3

REPORT INFORMATION
  Report Type: Spontaneous
  Country: JP (occurrence: JP)
  Receive Date: 20170731
  Receipt Date: 20170731
  Transmission Date: 20171127
  Serious: Yes (Other)
  Sender: FDA-Public Use
  Company Number: JP-GLENMARK PHARMACEUTICALS-2017GMK028303

PATIENT
  Age: 79 Year
  Sex: Male

DRUGS (6)
  1. VORICONAZOLE. [Interacting]
     Active Substance: VORICONAZOLE
     Indication: PNEUMONIA CRYPTOCOCCAL
     Dosage: 300 MG, QD
     Route: 065
  2. RUXOLITINIB [Interacting]
     Active Substance: RUXOLITINIB
     Indication: FATIGUE
  3. FLUCONAZOLE. [Suspect]
     Active Substance: FLUCONAZOLE
     Indication: PNEUMONIA CRYPTOCOCCAL
     Dosage: 200 MG, QD
     Route: 065
  4. RUXOLITINIB [Interacting]
     Active Substance: RUXOLITINIB
     Indication: MYELOFIBROSIS
     Dosage: UNK
     Route: 065
  5. VORICONAZOLE. [Interacting]
     Active Substance: VORICONAZOLE
     Dosage: 400 MG, QD
     Route: 065
  6. RUXOLITINIB [Interacting]
     Active Substance: RUXOLITINIB
     Indication: SPLENOMEGALY

REACTIONS (3)
  - Pneumonia cryptococcal [Recovering/Resolving]
  - Drug effect decreased [Unknown]
  - Condition aggravated [Recovering/Resolving]
